FAERS Safety Report 24060557 (Version 3)
Quarter: 2024Q3

REPORT INFORMATION
  Report Type: Spontaneous
  Country: GB (occurrence: GB)
  Receive Date: 20240708
  Receipt Date: 20240724
  Transmission Date: 20241016
  Serious: Yes (Hospitalization, Other)
  Sender: GLAXOSMITHKLINE
  Company Number: GB-GSKCCFEMEA-Case-02015147_AE-85020

PATIENT

DRUGS (3)
  1. LAMICTAL [Suspect]
     Active Substance: LAMOTRIGINE
     Indication: Epilepsy
     Dosage: 50 MG, BID
  2. LAMICTAL [Suspect]
     Active Substance: LAMOTRIGINE
     Dosage: 500 MG, BID
     Dates: start: 202406
  3. VALPROATE SODIUM [Suspect]
     Active Substance: VALPROATE SODIUM
     Indication: Product used for unknown indication
     Dosage: UNK

REACTIONS (9)
  - Pancreatitis [Unknown]
  - Gastrointestinal inflammation [Unknown]
  - Hallucination [Unknown]
  - Cardiac disorder [Unknown]
  - Motor dysfunction [Unknown]
  - Balance disorder [Not Recovered/Not Resolved]
  - Feeling abnormal [Unknown]
  - Paraesthesia [Not Recovered/Not Resolved]
  - Overdose [Unknown]

NARRATIVE: CASE EVENT DATE: 20240601
